FAERS Safety Report 25318862 (Version 2)
Quarter: 2025Q3

REPORT INFORMATION
  Report Type: Spontaneous
  Country: AU (occurrence: AU)
  Receive Date: 20250515
  Receipt Date: 20250801
  Transmission Date: 20251020
  Serious: Yes (Other)
  Sender: RANBAXY
  Company Number: AU-SUN PHARMACEUTICAL INDUSTRIES LTD-2025RR-507810

PATIENT
  Age: 5 Decade
  Sex: Female

DRUGS (21)
  1. SERTRALINE [Suspect]
     Active Substance: SERTRALINE HYDROCHLORIDE
     Indication: Persistent postural-perceptual dizziness
     Route: 065
  2. SERTRALINE [Suspect]
     Active Substance: SERTRALINE HYDROCHLORIDE
     Indication: Depression
  3. ESCITALOPRAM [Suspect]
     Active Substance: ESCITALOPRAM OXALATE
     Indication: Depression
     Route: 065
  4. ESCITALOPRAM [Suspect]
     Active Substance: ESCITALOPRAM OXALATE
     Indication: Persistent postural-perceptual dizziness
  5. VENLAFAXINE [Suspect]
     Active Substance: VENLAFAXINE HYDROCHLORIDE
     Indication: Depression
  6. VENLAFAXINE [Suspect]
     Active Substance: VENLAFAXINE HYDROCHLORIDE
     Indication: Persistent postural-perceptual dizziness
  7. OLANZAPINE [Suspect]
     Active Substance: OLANZAPINE
     Indication: Anxiety
     Dosage: 5 MILLIGRAM, BID
     Route: 065
  8. OLANZAPINE [Suspect]
     Active Substance: OLANZAPINE
     Indication: Sleep disorder
  9. SUMATRIPTAN [Suspect]
     Active Substance: SUMATRIPTAN
     Indication: Depression
     Route: 065
  10. SUMATRIPTAN [Suspect]
     Active Substance: SUMATRIPTAN
     Indication: Persistent postural-perceptual dizziness
  11. MIRTAZAPINE [Suspect]
     Active Substance: MIRTAZAPINE
     Indication: Depression
     Route: 065
  12. MIRTAZAPINE [Suspect]
     Active Substance: MIRTAZAPINE
     Indication: Persistent postural-perceptual dizziness
  13. DESVENLAFAXINE [Suspect]
     Active Substance: DESVENLAFAXINE
     Indication: Depression
     Route: 065
  14. DESVENLAFAXINE [Suspect]
     Active Substance: DESVENLAFAXINE
     Indication: Persistent postural-perceptual dizziness
  15. AGOMELATINE [Suspect]
     Active Substance: AGOMELATINE
     Indication: Depression
     Route: 065
  16. AGOMELATINE [Suspect]
     Active Substance: AGOMELATINE
     Indication: Persistent postural-perceptual dizziness
  17. TEMAZEPAM [Suspect]
     Active Substance: TEMAZEPAM
     Indication: Sleep disorder
     Route: 065
  18. BETAHISTINE [Suspect]
     Active Substance: BETAHISTINE
     Indication: Depression
     Route: 065
  19. BETAHISTINE [Suspect]
     Active Substance: BETAHISTINE
     Indication: Persistent postural-perceptual dizziness
  20. PROPRANOLOL [Suspect]
     Active Substance: PROPRANOLOL HYDROCHLORIDE
     Indication: Anxiety
     Dosage: 5 MILLIGRAM, BID
     Route: 065
  21. MELATONIN [Suspect]
     Active Substance: MELATONIN
     Indication: Sleep disorder

REACTIONS (3)
  - Off label use [Unknown]
  - Drug ineffective for unapproved indication [Unknown]
  - Exposure during pregnancy [Unknown]
